FAERS Safety Report 8533437 (Version 2)
Quarter: 2012Q4

REPORT INFORMATION
  Report Type: Report from Study
  Country: CA (occurrence: CA)
  Receive Date: 20120427
  Receipt Date: 20121018
  Transmission Date: 20130627
  Serious: Yes (Life-Threatening, Hospitalization)
  Sender: FDA-Public Use
  Company Number: CA-JNJFOC-20120409227

PATIENT
  Age: 72 Year
  Sex: Female
  Weight: 106.6 kg

DRUGS (1)
  1. REMICADE [Suspect]
     Indication: PSORIASIS
     Dates: start: 201201

REACTIONS (2)
  - Cardiac failure congestive [Recovered/Resolved with Sequelae]
  - Myocardial infarction [Recovered/Resolved]
